FAERS Safety Report 12037410 (Version 1)
Quarter: 2016Q1

REPORT INFORMATION
  Report Type: Spontaneous
  Country: US (occurrence: None)
  Receive Date: 20160205
  Receipt Date: 20160205
  Transmission Date: 20160526
  Serious: Yes (Disabling)
  Sender: FDA-Public Use
  Company Number: None

PATIENT
  Age: 75 Year
  Sex: Male
  Weight: 82.56 kg

DRUGS (8)
  1. METOPROLL TARTRATE [Concomitant]
     Active Substance: METOPROLOL TARTRATE
  2. MUCINEX [Concomitant]
     Active Substance: GUAIFENESIN
  3. ASPIRIN 81MG [Concomitant]
     Active Substance: ASPIRIN
  4. AMLODIPINE BESYLATE 2.5 + LATER 5.0 MG LUPIN PHARMACEUTICALS, INC . [Suspect]
     Active Substance: AMLODIPINE BESYLATE
     Indication: HYPERTENSION
     Dosage: 1 PILL ONCE DAILY TAKEN BY MOUTH
     Route: 048
     Dates: start: 20130513, end: 20130901
  5. LOSARTAN POTASSIUM. [Concomitant]
     Active Substance: LOSARTAN POTASSIUM
  6. HYDROCODONE BITARTRATE AND ACETAMINOPHEN [Concomitant]
     Active Substance: ACETAMINOPHEN\HYDROCODONE BITARTRATE
  7. LORATADINE. [Concomitant]
     Active Substance: LORATADINE
  8. ACIDOPHILUS PROBIOTIC [Concomitant]

REACTIONS (2)
  - Peripheral swelling [None]
  - Dupuytren^s contracture [None]

NARRATIVE: CASE EVENT DATE: 20131215
